FAERS Safety Report 8924008 (Version 1)
Quarter: 2012Q4

REPORT INFORMATION
  Report Type: Spontaneous
  Country: GB (occurrence: None)
  Receive Date: 20121116
  Receipt Date: 20121116
  Transmission Date: 20130627
  Serious: Yes (Other)
  Sender: FDA-Public Use
  Company Number: 1481702

PATIENT
  Age: 67 Year
  Sex: Male

DRUGS (7)
  1. GENTAMICIN SULFATE [Suspect]
     Indication: DRUG USE FOR UNKNOWN INDICATION
  2. SPIRONOLACTONE [Concomitant]
  3. RAMIPRIL [Concomitant]
  4. FUROSEMIDE [Concomitant]
  5. BISOPROLOL FUMARATE [Concomitant]
  6. ISOSORBIDE MONONITRATE [Concomitant]
  7. RIFAMPICIN [Concomitant]

REACTIONS (4)
  - Cardiac failure [None]
  - Ventricular tachycardia [None]
  - Cardiac arrest [None]
  - Renal impairment [None]
